FAERS Safety Report 19021108 (Version 2)
Quarter: 2021Q2

REPORT INFORMATION
  Report Type: Spontaneous
  Country: US (occurrence: US)
  Receive Date: 20210317
  Receipt Date: 20210405
  Transmission Date: 20210717
  Serious: Yes (Hospitalization, Other)
  Sender: FDA-Public Use
  Company Number: US-ALLERGAN-2105406US

PATIENT
  Sex: Male

DRUGS (2)
  1. LEVOTHYROXINE. [Concomitant]
     Active Substance: LEVOTHYROXINE
     Indication: HYPOTHYROIDISM
  2. VRAYLAR [Suspect]
     Active Substance: CARIPRAZINE
     Indication: PSYCHOTIC DISORDER
     Dosage: 9 MG, QD
     Route: 048
     Dates: start: 202009

REACTIONS (7)
  - Aggression [Unknown]
  - Off label use [Unknown]
  - Overdose [Unknown]
  - Violence-related symptom [Unknown]
  - Hospitalisation [Unknown]
  - Psychotic disorder [Unknown]
  - Physical assault [Unknown]
